FAERS Safety Report 6543988-5 (Version None)
Quarter: 2010Q1

REPORT INFORMATION
  Report Type: 
  Country: None (occurrence: None)
  Receive Date: 20100120
  Receipt Date: 20091207
  Transmission Date: 20100710
  Serious: Yes (Hospitalization)
  Sender: FDA-Public Use
  Company Number: FR-SANOFI-AVENTIS-2009SA011333

PATIENT
  Age: 52 Year

DRUGS (6)
  1. OXALIPLATIN [Suspect]
     Indication: COLON CANCER
     Route: 041
     Dates: start: 20071120, end: 20071120
  2. OXALIPLATIN [Suspect]
     Route: 041
     Dates: start: 20080114, end: 20080114
  3. FLUOROURACIL [Suspect]
     Indication: COLON CANCER
     Route: 042
     Dates: start: 20071120, end: 20071120
  4. FLUOROURACIL [Suspect]
     Route: 042
     Dates: start: 20080114, end: 20080115
  5. FOLINIC ACID [Suspect]
     Indication: COLON CANCER
     Route: 042
     Dates: start: 20071120, end: 20071120
  6. FOLINIC ACID [Suspect]
     Route: 042
     Dates: start: 20080114, end: 20080115

REACTIONS (1)
  - ANAL FISSURE [None]
